FAERS Safety Report 6373322-5 (Version None)
Quarter: 2009Q3

REPORT INFORMATION
  Report Type: 
  Country: None (occurrence: None)
  Receive Date: 20090924
  Receipt Date: 20090724
  Transmission Date: 20100115
  Serious: Yes (Hospitalization)
  Sender: FDA-Public Use
  Company Number: US-ASTRAZENECA-2009UW08164

PATIENT
  Age: 14223 Day
  Sex: Female
  Weight: 86.2 kg

DRUGS (5)
  1. SEROQUEL XR [Suspect]
     Indication: BIPOLAR I DISORDER
     Route: 048
     Dates: start: 20090101, end: 20090629
  2. SEROQUEL XR [Suspect]
     Dosage: PLANS TO TAPER DOWN TO SEROQUEL 25 MG AND DISCONTINUE AGAIN
     Route: 048
     Dates: start: 20090713
  3. TRAZODONE [Concomitant]
  4. LORAZEPAM [Concomitant]
  5. CELEXA [Concomitant]

REACTIONS (4)
  - ANXIETY [None]
  - PARAESTHESIA [None]
  - SCIATICA [None]
  - TARDIVE DYSKINESIA [None]
